FAERS Safety Report 8900547 (Version 1)
Quarter: 2012Q4

REPORT INFORMATION
  Report Type: 
  Country: US (occurrence: US)
  Receive Date: 20121108
  Receipt Date: 20121108
  Transmission Date: 20130627
  Serious: No
  Sender: FDA-Public Use
  Company Number: US-AMGEN-USASP2012038440

PATIENT
  Sex: Male
  Weight: 97.51 kg

DRUGS (7)
  1. ENBREL [Suspect]
     Indication: PRODUCT USED FOR UNKNOWN INDICATION
     Dosage: 50 mg, qwk
     Route: 058
  2. ZOCOR [Concomitant]
     Dosage: 5 mg, UNK
  3. RAMIPRIL [Concomitant]
     Dosage: 5 mg, UNK
  4. PREDNISONE [Concomitant]
     Dosage: 5 mg, UNK
  5. LEFLUNOMIDE [Concomitant]
     Dosage: 10 mg, UNK
  6. ATENOLOL [Concomitant]
     Dosage: 50 mg, UNK
  7. THYROID [Concomitant]
     Dosage: 60 mg, UNK

REACTIONS (1)
  - Bronchitis [Unknown]
